FAERS Safety Report 4918117-1 (Version None)
Quarter: 2006Q1

REPORT INFORMATION
  Report Type: 
  Country: None (occurrence: None)
  Receive Date: 20060221
  Receipt Date: 20051122
  Transmission Date: 20060701
  Serious: Yes (Hospitalization)
  Sender: FDA-Public Use
  Company Number: US-MERCK-0511USA03802

PATIENT
  Age: 45 Year
  Sex: Female
  Weight: 82 kg

DRUGS (1)
  1. VIOXX [Suspect]
     Indication: ARTHRITIS
     Route: 048
     Dates: start: 20000130, end: 20010822

REACTIONS (22)
  - ABDOMINAL PAIN [None]
  - ANGINA PECTORIS [None]
  - ARTERIOSCLEROSIS CORONARY ARTERY [None]
  - BLOOD PRESSURE [None]
  - CARDIAC FAILURE CONGESTIVE [None]
  - CARDIAC FLUTTER [None]
  - CEREBROVASCULAR ACCIDENT [None]
  - CHEST PAIN [None]
  - DIABETES MELLITUS [None]
  - DIABETES MELLITUS NON-INSULIN-DEPENDENT [None]
  - DYSPNOEA [None]
  - HEART RATE INCREASED [None]
  - HEART VALVE INSUFFICIENCY [None]
  - HYPERTENSION [None]
  - MALAISE [None]
  - MYOCARDIAL INFARCTION [None]
  - NERVOUSNESS [None]
  - PAIN IN EXTREMITY [None]
  - SINUS TACHYCARDIA [None]
  - TACHYCARDIA [None]
  - THROMBOSIS [None]
  - TYPE IV HYPERLIPIDAEMIA [None]
